FAERS Safety Report 25624378 (Version 1)
Quarter: 2025Q3

REPORT INFORMATION
  Report Type: Report from Study
  Country: EU (occurrence: EU)
  Receive Date: 20250730
  Receipt Date: 20250730
  Transmission Date: 20251021
  Serious: Yes (Other)
  Sender: VERITY PHARMACEUTICALS INC.
  Company Number: EU-VER-202500009

PATIENT
  Sex: Female

DRUGS (2)
  1. TRIPTORELIN [Suspect]
     Active Substance: TRIPTORELIN
     Indication: Ovulation induction
     Route: 058
  2. TRIPTORELIN [Suspect]
     Active Substance: TRIPTORELIN
     Indication: Off label use
     Route: 058

REACTIONS (2)
  - Abortion spontaneous [Unknown]
  - Off label use [Unknown]
